FAERS Safety Report 5011953-5 (Version None)
Quarter: 2006Q2

REPORT INFORMATION
  Report Type: 
  Country: None (occurrence: None)
  Receive Date: 20060526
  Receipt Date: 20041028
  Transmission Date: 20061013
  Serious: Yes (Hospitalization, Disabling)
  Sender: FDA-Public Use
  Company Number: US-ROCHE-384993

PATIENT
  Age: 17 Year
  Sex: Female
  Weight: 54 kg

DRUGS (4)
  1. ACCUTANE [Suspect]
     Indication: ACNE
     Route: 048
     Dates: start: 19980422, end: 19980615
  2. ACCUTANE [Suspect]
     Route: 048
     Dates: start: 19971204, end: 19980112
  3. ACCUTANE [Suspect]
     Route: 048
     Dates: start: 19980113, end: 19980317
  4. ACCUTANE [Suspect]
     Route: 048
     Dates: start: 19980318, end: 19980421

REACTIONS (30)
  - ABDOMINAL ABSCESS [None]
  - ADJUSTMENT DISORDER [None]
  - ALOPECIA EFFLUVIUM [None]
  - ANAEMIA [None]
  - ANHEDONIA [None]
  - ANXIETY [None]
  - BACK PAIN [None]
  - CATHETER SITE PAIN [None]
  - COLITIS [None]
  - CROHN'S DISEASE [None]
  - DEPRESSION [None]
  - DIZZINESS [None]
  - DUODENITIS [None]
  - ENTEROCUTANEOUS FISTULA [None]
  - GASTRITIS [None]
  - GASTROINTESTINAL DISORDER [None]
  - INFLAMMATORY BOWEL DISEASE [None]
  - INTESTINAL HAEMORRHAGE [None]
  - IRRITABLE BOWEL SYNDROME [None]
  - JOINT SPRAIN [None]
  - MIGRAINE [None]
  - MULTI-ORGAN DISORDER [None]
  - NEURALGIA [None]
  - NEUROPATHY PERIPHERAL [None]
  - OROPHARYNGEAL CANDIDIASIS [None]
  - PERITONITIS [None]
  - PILONIDAL CYST [None]
  - RECTAL HAEMORRHAGE [None]
  - SINUS BRADYCARDIA [None]
  - STOMATITIS [None]
